FAERS Safety Report 11153814 (Version 1)
Quarter: 2015Q2

REPORT INFORMATION
  Report Type: Spontaneous
  Country: US (occurrence: US)
  Receive Date: 20150602
  Receipt Date: 20150602
  Transmission Date: 20150821
  Serious: No
  Sender: FDA-Public Use
  Company Number: US-NOVEN PHARMACEUTICALS, INC.-14US010117

PATIENT
  Age: 45 Year
  Sex: Female

DRUGS (1)
  1. DAYTRANA [Suspect]
     Active Substance: METHYLPHENIDATE
     Indication: PRODUCT USED FOR UNKNOWN INDICATION
     Dosage: 1/2 OF 20 MG PATCH
     Route: 062

REACTIONS (4)
  - Off label use [Not Recovered/Not Resolved]
  - Wrong technique in drug usage process [Unknown]
  - Drug prescribing error [Unknown]
  - No adverse event [None]
